FAERS Safety Report 14637372 (Version 1)
Quarter: 2018Q1

REPORT INFORMATION
  Report Type: Spontaneous
  Country: US (occurrence: US)
  Receive Date: 20180314
  Receipt Date: 20180314
  Transmission Date: 20180509
  Serious: No
  Sender: FDA-Public Use
  Company Number: US-ALLERGAN-1767198US

PATIENT
  Sex: Male

DRUGS (1)
  1. HYDROCODONE BITARTRATE;ACETAMINOPHEN UNK [Suspect]
     Active Substance: ACETAMINOPHEN\HYDROCODONE BITARTRATE
     Indication: MIGRAINE
     Dosage: UNK
     Route: 065
     Dates: start: 2015

REACTIONS (5)
  - Vomiting [Unknown]
  - Coeliac disease [Unknown]
  - Off label use [Unknown]
  - Arthralgia [Unknown]
  - Migraine [Unknown]

NARRATIVE: CASE EVENT DATE: 2015
